FAERS Safety Report 8418596-1 (Version None)
Quarter: 2012Q2

REPORT INFORMATION
  Report Type: 
  Country: None (occurrence: None)
  Receive Date: 20120607
  Receipt Date: 20120529
  Transmission Date: 20120825
  Serious: Yes (Other)
  Sender: FDA-Public Use
  Company Number: IT-BRISTOL-MYERS SQUIBB COMPANY-16639668

PATIENT
  Sex: Male

DRUGS (1)
  1. ORENCIA [Suspect]

REACTIONS (1)
  - EJECTION FRACTION DECREASED [None]
